FAERS Safety Report 6631614-6 (Version None)
Quarter: 2010Q1

REPORT INFORMATION
  Report Type: 
  Country: None (occurrence: None)
  Receive Date: 20100312
  Receipt Date: 20100301
  Transmission Date: 20100710
  Serious: Yes (Other)
  Sender: FDA-Public Use
  Company Number: GB-PFIZER INC-2010025688

PATIENT
  Age: 25 Year
  Sex: Male
  Weight: 72 kg

DRUGS (2)
  1. CHAMPIX [Suspect]
     Indication: SMOKING CESSATION THERAPY
     Dosage: 1 MG, 2X/DAY
     Route: 048
     Dates: start: 20100207, end: 20100210
  2. IBUPROFEN [Concomitant]
     Indication: CHEST PAIN
     Dosage: 400 MG, UNK
     Route: 048
     Dates: start: 20100110

REACTIONS (4)
  - LIBIDO INCREASED [None]
  - MOOD SWINGS [None]
  - NAUSEA [None]
  - STRESS [None]
